FAERS Safety Report 8954679 (Version 2)
Quarter: 2013Q2

REPORT INFORMATION
  Report Type: Report from Study
  Country: MX (occurrence: MX)
  Receive Date: 20121207
  Receipt Date: 20130515
  Transmission Date: 20140414
  Serious: Yes (Death, Hospitalization)
  Sender: FDA-Public Use
  Company Number: PHHY2012MX112490

PATIENT
  Age: 77 Year
  Sex: Male

DRUGS (6)
  1. RASILEZ [Suspect]
     Indication: RENAL FAILURE
     Dosage: 300 MG, DAILY
     Route: 048
     Dates: start: 2009
  2. RASILEZ [Suspect]
     Indication: OFF LABEL USE
  3. INSULIN [Concomitant]
     Indication: DIABETES MELLITUS
     Dosage: 10 IU, DAILY
     Route: 058
     Dates: start: 1992
  4. ERYTHROPOIETIN [Concomitant]
     Indication: ANAEMIA
     Dosage: 2 DF, WEEKLY
     Route: 058
     Dates: start: 20121010
  5. ENALAPRIL [Concomitant]
     Indication: HYPERTENSION
     Dosage: 1 UKN, (TWICE A DAY) DAILY
     Route: 048
  6. LOSARTAN [Concomitant]
     Indication: HYPERTENSION
     Dosage: 1 UKN, DAILY
     Route: 048

REACTIONS (4)
  - Peritonitis [Fatal]
  - Gastric ulcer [Not Recovered/Not Resolved]
  - Upper gastrointestinal haemorrhage [Not Recovered/Not Resolved]
  - Renal failure [Not Recovered/Not Resolved]
